FAERS Safety Report 4902374-1 (Version None)
Quarter: 2006Q1

REPORT INFORMATION
  Report Type: 
  Country: None (occurrence: None)
  Receive Date: 20060202
  Receipt Date: 20060124
  Transmission Date: 20060701
  Serious: Yes (Hospitalization)
  Sender: FDA-Public Use
  Company Number: 2006-01-1329

PATIENT
  Age: 39 Year
  Sex: Male

DRUGS (6)
  1. RIBAVIRIN [Suspect]
     Dosage: 600 MG BID
     Dates: start: 20050601, end: 20050801
  2. ZAPONEX (OLANZAPINE) ORALS [Suspect]
     Dosage: 300 MG/DAY ORAL
     Route: 048
     Dates: start: 20041103, end: 20050721
  3. CLOZAPINE ORALS [Suspect]
     Dosage: 325 MG/DAY
     Dates: start: 20030424, end: 20041102
  4. PEGASYS [Concomitant]
  5. INSULIN ASPART BID [Concomitant]
  6. AMISULPRIDE [Concomitant]

REACTIONS (5)
  - CHRONIC HEPATITIS [None]
  - CONDITION AGGRAVATED [None]
  - DRUG INTERACTION [None]
  - NEUTROPENIA [None]
  - WHITE BLOOD CELL COUNT DECREASED [None]
